FAERS Safety Report 9353326 (Version 2)
Quarter: 2013Q3

REPORT INFORMATION
  Report Type: Spontaneous
  Country: US (occurrence: US)
  Receive Date: 20130618
  Receipt Date: 20130726
  Transmission Date: 20140515
  Serious: Yes (Hospitalization, Disabling, Other)
  Sender: FDA-Public Use
  Company Number: US-BAYER-2013-072774

PATIENT
  Age: 22 Year
  Sex: Female

DRUGS (8)
  1. YAZ [Suspect]
  2. YASMIN [Suspect]
  3. ADDERALL [Concomitant]
     Route: 048
  4. OXYCONTIN [Concomitant]
     Route: 048
  5. SUBOXONE [Concomitant]
     Route: 048
  6. MORPHINE [Concomitant]
     Route: 048
  7. XANAX [Concomitant]
     Route: 048
  8. ZOLOFT [Concomitant]
     Route: 048

REACTIONS (8)
  - Injury [None]
  - Septic embolus [None]
  - Thrombosis [None]
  - Pain [None]
  - Emotional distress [None]
  - Anxiety [None]
  - Fear of death [None]
  - Pain [None]
